FAERS Safety Report 4743739-0 (Version None)
Quarter: 2005Q3

REPORT INFORMATION
  Report Type: 
  Country: None (occurrence: None)
  Receive Date: 20050812
  Receipt Date: 20050509
  Transmission Date: 20060218
  Serious: Yes (Hospitalization)
  Sender: FDA-Public Use
  Company Number: FR-GLAXOSMITHKLINE-B0380730B

PATIENT
  Sex: Female

DRUGS (7)
  1. RETROVIR [Suspect]
     Indication: ANTIVIRAL PROPHYLAXIS
     Route: 048
     Dates: start: 20050328
  2. RETROVIR [Suspect]
     Route: 042
  3. EPIVIR [Suspect]
     Indication: HIV INFECTION
     Dosage: 300MG PER DAY
     Dates: start: 20041028, end: 20050324
  4. VIDEX [Suspect]
     Indication: HIV INFECTION
     Dosage: 250MG PER DAY
     Dates: start: 20040801, end: 20050324
  5. NORVIR [Suspect]
     Indication: HIV INFECTION
     Dosage: 100MG PER DAY
     Dates: start: 20040729, end: 20050324
  6. REYATAZ [Suspect]
     Indication: HIV INFECTION
     Dosage: 300MG PER DAY
     Dates: start: 20040729, end: 20050324
  7. VIREAD [Suspect]
     Indication: HIV INFECTION
     Dates: start: 20040729, end: 20041028

REACTIONS (15)
  - ANAEMIA [None]
  - CAESAREAN SECTION [None]
  - DRUG EXPOSURE DURING PREGNANCY [None]
  - ENTEROCOLITIS HAEMORRHAGIC [None]
  - FOETAL ARRHYTHMIA [None]
  - HAEMATOCHEZIA [None]
  - HYPOGLYCAEMIA [None]
  - HYPOGLYCAEMIA NEONATAL [None]
  - HYPOTONIA [None]
  - HYPOTONIA NEONATAL [None]
  - JAUNDICE [None]
  - JAUNDICE NEONATAL [None]
  - PREMATURE BABY [None]
  - TREMOR [None]
  - TREMOR NEONATAL [None]
